FAERS Safety Report 6727745-2 (Version None)
Quarter: 2010Q2

REPORT INFORMATION
  Report Type: 
  Country: None (occurrence: None)
  Receive Date: 20100514
  Receipt Date: 20100514
  Transmission Date: 20101027
  Serious: No
  Sender: FDA-Public Use
  Company Number: None

PATIENT
  Age: 62 Year
  Sex: Male
  Weight: 204 kg

DRUGS (1)
  1. METOPROLOL SUCCINATE [Suspect]
     Dosage: 25 MG BID PO
     Route: 048
     Dates: start: 20100101, end: 20100401

REACTIONS (2)
  - DIZZINESS [None]
  - HEADACHE [None]
